FAERS Safety Report 19153528 (Version 14)
Quarter: 2021Q4

REPORT INFORMATION
  Report Type: Spontaneous
  Country: PL (occurrence: PL)
  Receive Date: 20210419
  Receipt Date: 20211206
  Transmission Date: 20220303
  Serious: Yes (Life-Threatening, Hospitalization, Other)
  Sender: FDA-Public Use
  Company Number: PL-USP-ICSR-2020-87-88_96

PATIENT
  Age: 69 Year
  Sex: Female

DRUGS (45)
  1. METOPROLOL [Interacting]
     Active Substance: METOPROLOL
     Indication: Hypertension
     Dosage: 100 MILLIGRAM, QD (100 MG, 1X/DAY )
     Route: 048
  2. METOPROLOL [Interacting]
     Active Substance: METOPROLOL
     Indication: Atrial fibrillation
     Dosage: 100 MILLIGRAM, QD
     Route: 048
  3. METOPROLOL [Interacting]
     Active Substance: METOPROLOL
     Dosage: 200 MILLIGRAM, QD
     Route: 065
  4. METOPROLOL [Interacting]
     Active Substance: METOPROLOL
     Dosage: 200 MILLIGRAM
     Route: 065
  5. METOPROLOL [Interacting]
     Active Substance: METOPROLOL
     Dosage: 100 MILLIGRAM, QD
  6. ASPIRIN [Interacting]
     Active Substance: ASPIRIN
     Indication: Viral infection
     Dosage: UNK, FOR 3 DAYS
     Route: 048
  7. ASPIRIN [Interacting]
     Active Substance: ASPIRIN
     Indication: Infection
     Dosage: UNK
     Route: 048
  8. ASPIRIN [Interacting]
     Active Substance: ASPIRIN
     Dosage: UNK
     Route: 065
  9. ROSUVASTATIN [Interacting]
     Active Substance: ROSUVASTATIN
     Indication: Hypertension
     Dosage: 10 MILLIGRAM, QD (10 MG, 1X/DAY)
     Route: 048
  10. ROSUVASTATIN [Interacting]
     Active Substance: ROSUVASTATIN
     Dosage: 1 DOSAGE FORM
     Route: 048
  11. ROSUVASTATIN [Interacting]
     Active Substance: ROSUVASTATIN
     Dosage: 10 MILLIGRAM
     Route: 065
  12. ROSUVASTATIN [Interacting]
     Active Substance: ROSUVASTATIN
     Dosage: 10 MILLIGRAM, QD (10 MG, QD)
  13. SPORANOX [Interacting]
     Active Substance: ITRACONAZOLE
     Indication: Tinea versicolour
     Dosage: 100 MILLIGRAM, BID (200 MILLIGRAM, DAILY, FOR 7 DAYS)
     Route: 048
  14. SPORANOX [Interacting]
     Active Substance: ITRACONAZOLE
     Dosage: 200 MILLIGRAM, QD (100 MG, 2X/DAY )
     Route: 048
  15. NIMESULIDE [Interacting]
     Active Substance: NIMESULIDE
     Indication: Analgesic intervention supportive therapy
     Dosage: 100 MILLIGRAM, BID (100 MG, 2X/DAY (EVERY 12 HOURS))
     Route: 048
  16. NIMESULIDE [Interacting]
     Active Substance: NIMESULIDE
     Indication: Antiinflammatory therapy
     Dosage: 200 MILLIGRAM, QD(100 MG, BID)
  17. NIMESULIDE [Interacting]
     Active Substance: NIMESULIDE
     Indication: Analgesic therapy
  18. NIMESULIDE [Interacting]
     Active Substance: NIMESULIDE
     Indication: Pain
  19. NIMESULIDE [Interacting]
     Active Substance: NIMESULIDE
     Indication: Inflammation
  20. PROPAFENONE [Interacting]
     Active Substance: PROPAFENONE
     Indication: Atrial fibrillation
     Dosage: 300 MILLIGRAM, PRN (ON DEMAND IN THE CASE OF AN EPISODE OF ATRIAL FIBRILLATION (AF))
     Route: 048
  21. PROPAFENONE [Interacting]
     Active Substance: PROPAFENONE
     Indication: Arrhythmia prophylaxis
     Dosage: UNK UNK, PRN
  22. PROPAFENONE [Interacting]
     Active Substance: PROPAFENONE
     Dosage: 300 MILLIGRAM, AS A SINGLE DOSE
     Route: 065
  23. PROPAFENONE [Interacting]
     Active Substance: PROPAFENONE
     Dosage: UNK
  24. AMLODIPINE\INDAPAMIDE\PERINDOPRIL [Interacting]
     Active Substance: AMLODIPINE\INDAPAMIDE\PERINDOPRIL
     Indication: Hypertension
     Dosage: 1 DOSAGE FORM, QD (MORNING)
     Route: 048
  25. AMLODIPINE\INDAPAMIDE\PERINDOPRIL [Interacting]
     Active Substance: AMLODIPINE\INDAPAMIDE\PERINDOPRIL
     Dosage: UNK
     Route: 065
  26. DABIGATRAN [Interacting]
     Active Substance: DABIGATRAN
     Indication: Anticoagulant therapy
     Dosage: 300 MILLIGRAM QD (150 MG 2 ? 1 TABL)
     Route: 048
  27. DABIGATRAN [Interacting]
     Active Substance: DABIGATRAN
     Indication: Ischaemic stroke
     Dosage: 300 MILLIGRAM QD (150 MG BID)
  28. DABIGATRAN [Interacting]
     Active Substance: DABIGATRAN
     Indication: Prophylaxis
  29. DABIGATRAN [Interacting]
     Active Substance: DABIGATRAN
     Indication: Ischaemic heart disease prophylaxis
  30. PROPAFENONE HYDROCHLORIDE [Interacting]
     Active Substance: PROPAFENONE HYDROCHLORIDE
     Indication: Atrial fibrillation
     Dosage: 300 MILLIGRAM, PRN (ON DEMAND IN THE CASE OF AN EPISODE OF ATRIAL FIBRILLATION)
     Route: 048
  31. AMLODIPINE BESYLATE\INDAPAMIDE\PERINDOPRIL ARGININE [Interacting]
     Active Substance: AMLODIPINE BESYLATE\INDAPAMIDE\PERINDOPRIL ARGININE
     Indication: Product used for unknown indication
     Dosage: UNK
     Route: 065
  32. KETOPROFEN [Interacting]
     Active Substance: KETOPROFEN
     Indication: Analgesic therapy
     Dosage: UNK UNK, PRN (TAKEN AT TIMES OF SEVERE ARTHRALGIA)
     Route: 048
  33. KETOPROFEN [Interacting]
     Active Substance: KETOPROFEN
     Indication: Arthralgia
     Dosage: UNK
  34. AMLODIPINE BESYLATE\INDAPAMIDE\PERINDOPRIL ARGININE [Suspect]
     Active Substance: AMLODIPINE BESYLATE\INDAPAMIDE\PERINDOPRIL ARGININE
     Indication: Product used for unknown indication
     Dosage: UNK
  35. ITRACONAZOLE [Interacting]
     Active Substance: ITRACONAZOLE
     Indication: Tinea versicolour
     Dosage: 200 MILLIGRAM, QD (100 MILLIGRAM, BID)
     Route: 048
  36. DABIGATRAN ETEXILATE [Interacting]
     Active Substance: DABIGATRAN ETEXILATE
     Indication: Anticoagulant therapy
     Dosage: 300 MILLIGRAM, QD (150 MG, BID)
     Route: 048
  37. DABIGATRAN ETEXILATE [Interacting]
     Active Substance: DABIGATRAN ETEXILATE
     Indication: Prophylaxis
  38. METOPROLOL [Concomitant]
     Active Substance: METOPROLOL
     Indication: Hypertension
     Dosage: 100 MILLIGRAM, QD
  39. ASPIRIN [Concomitant]
     Active Substance: ASPIRIN
     Indication: Viral infection
     Dosage: UNK
  40. NIMESULIDE [Concomitant]
     Active Substance: NIMESULIDE
     Indication: Analgesic therapy
     Dosage: 100 MG EVERY 12 HOURS
  41. NIMESULIDE [Concomitant]
     Active Substance: NIMESULIDE
     Indication: Antiinflammatory therapy
     Dosage: UNK
     Route: 065
  42. KETOPROFEN [Concomitant]
     Active Substance: KETOPROFEN
     Indication: Product used for unknown indication
     Dosage: UNK
     Route: 065
  43. ITRACONAZOLE [Concomitant]
     Active Substance: ITRACONAZOLE
     Indication: Product used for unknown indication
     Dosage: UNK
     Route: 065
  44. DABIGATRAN                         /01633202/ [Concomitant]
     Indication: Product used for unknown indication
     Dosage: UNK
     Route: 065
  45. PROPAFENONE                        /00546302/ [Concomitant]
     Indication: Product used for unknown indication
     Dosage: UNK
     Route: 065

REACTIONS (28)
  - Blood pressure decreased [Recovered/Resolved]
  - Atrioventricular block complete [Recovered/Resolved]
  - Leukocytosis [Recovered/Resolved]
  - Bradyarrhythmia [Recovered/Resolved]
  - Asthenia [Recovered/Resolved]
  - Anaemia [Recovered/Resolved]
  - Troponin increased [Recovered/Resolved]
  - Cardiomyopathy [Recovered/Resolved]
  - Gastritis erosive [Recovered/Resolved]
  - Syncope [Recovered/Resolved]
  - Pallor [Recovered/Resolved]
  - Haemorrhage [Unknown]
  - Bradycardia [Recovered/Resolved]
  - Drug ineffective [Unknown]
  - Circumstance or information capable of leading to medication error [Recovering/Resolving]
  - Product use issue [Unknown]
  - Incorrect dose administered [Unknown]
  - Duplicate therapy error [Recovered/Resolved]
  - Product prescribing issue [Recovered/Resolved]
  - Drug-disease interaction [Recovered/Resolved]
  - Atrioventricular block [Unknown]
  - Drug abuse [Unknown]
  - Gastrointestinal haemorrhage [Unknown]
  - Labelled drug-drug interaction medication error [Unknown]
  - Off label use [Unknown]
  - Product dispensing issue [Unknown]
  - Intentional product use issue [Unknown]
  - Drug interaction [Unknown]

NARRATIVE: CASE EVENT DATE: 20200101
